FAERS Safety Report 4467506-0 (Version None)
Quarter: 2004Q4

REPORT INFORMATION
  Report Type: 
  Country: None (occurrence: None)
  Receive Date: 20041006
  Receipt Date: 20041001
  Transmission Date: 20050328
  Serious: Yes (Disabling)
  Sender: FDA-Public Use
  Company Number: US-MERCK-0410USA00317

PATIENT
  Age: 32 Year
  Sex: Female

DRUGS (3)
  1. METOPROLOL [Concomitant]
     Route: 065
  2. INDERAL [Concomitant]
     Route: 065
  3. VIOXX [Suspect]
     Indication: PAIN
     Route: 048
     Dates: start: 20040901, end: 20041001

REACTIONS (3)
  - ERUCTATION [None]
  - FLATULENCE [None]
  - TACHYCARDIA [None]
